FAERS Safety Report 4946629-3 (Version None)
Quarter: 2006Q1

REPORT INFORMATION
  Report Type: 
  Country: None (occurrence: None)
  Receive Date: 20060201
  Receipt Date: 20051215
  Transmission Date: 20060701
  Serious: No
  Sender: FDA-Public Use
  Company Number: 2005PV005896

PATIENT
  Age: 66 Year
  Sex: Female

DRUGS (3)
  1. BYETTA [Suspect]
     Indication: DIABETES MELLITUS NON-INSULIN-DEPENDENT
     Dosage: 50 MCG;QD; SC
     Route: 058
     Dates: start: 20051113
  2. AVANDIA [Concomitant]
  3. GLIPIZIDE [Concomitant]

REACTIONS (5)
  - INJECTION SITE BRUISING [None]
  - INJECTION SITE RASH [None]
  - INJECTION SITE URTICARIA [None]
  - NAUSEA [None]
  - WEIGHT DECREASED [None]
